FAERS Safety Report 15709965 (Version 2)
Quarter: 2019Q1

REPORT INFORMATION
  Report Type: Report from Study
  Country: US (occurrence: US)
  Receive Date: 20181211
  Receipt Date: 20190118
  Transmission Date: 20190417
  Serious: No
  Sender: FDA-Public Use
  Company Number: US-INCYTE CORPORATION-2018IN011282

PATIENT

DRUGS (2)
  1. CHLORTHALIDONE. [Concomitant]
     Active Substance: CHLORTHALIDONE
     Indication: PRODUCT USED FOR UNKNOWN INDICATION
     Dosage: UNK
     Route: 065
  2. JAKAFI [Suspect]
     Active Substance: RUXOLITINIB
     Indication: MYELOFIBROSIS
     Dosage: 20 MG, BID
     Route: 048
     Dates: start: 20181018

REACTIONS (22)
  - Fatigue [Unknown]
  - Dyspnoea exertional [Unknown]
  - Arthralgia [Unknown]
  - Weight decreased [Unknown]
  - Constipation [Unknown]
  - Depression [Unknown]
  - Anxiety [Unknown]
  - Disturbance in attention [Unknown]
  - Abdominal tenderness [Unknown]
  - Diarrhoea [Unknown]
  - Platelet count abnormal [Unknown]
  - Movement disorder [Unknown]
  - Abdominal distension [Unknown]
  - Sleep disorder [Unknown]
  - Therapeutic response unexpected [Unknown]
  - Oedema peripheral [Unknown]
  - Flank pain [Unknown]
  - Nervousness [Unknown]
  - Abdominal rigidity [Unknown]
  - White blood cell count increased [Unknown]
  - Viral infection [Unknown]
  - Abdominal pain [Unknown]
